FAERS Safety Report 9360257 (Version 1)
Quarter: 2013Q2

REPORT INFORMATION
  Report Type: Spontaneous
  Country: US (occurrence: US)
  Receive Date: 20130621
  Receipt Date: 20130621
  Transmission Date: 20140414
  Serious: Yes (Other)
  Sender: FDA-Public Use
  Company Number: US-ELI_LILLY_AND_COMPANY-US201306003211

PATIENT
  Sex: Male

DRUGS (3)
  1. STRATTERA [Suspect]
     Dosage: UNK UNK, UNKNOWN
     Route: 065
     Dates: start: 2012, end: 2013
  2. ALBUTEROL [Interacting]
     Indication: CROUP INFECTIOUS
     Dosage: UNK, UNKNOWN
     Route: 065
  3. PREVACID [Concomitant]
     Dosage: UNK, UNKNOWN
     Route: 065

REACTIONS (8)
  - Dyspnoea [Unknown]
  - Croup infectious [Unknown]
  - Feeling jittery [Unknown]
  - Vomiting [Unknown]
  - Abdominal discomfort [Unknown]
  - Drug interaction [Unknown]
  - Drug ineffective [Unknown]
  - Wrong drug administered [Unknown]
